FAERS Safety Report 4624772-6 (Version None)
Quarter: 2005Q1

REPORT INFORMATION
  Report Type: 
  Country: None (occurrence: None)
  Receive Date: 20050107
  Receipt Date: 20040910
  Transmission Date: 20050727
  Serious: No
  Sender: FDA-Public Use
  Company Number: 230198M04USA

PATIENT
  Age: 51 Year
  Sex: Female

DRUGS (7)
  1. REBIF [Suspect]
     Indication: MULTIPLE SCLEROSIS
     Dosage: 22 MCG, 3 IN 1 WEEKS
     Dates: start: 20030301
  2. RITALIN (METHYLPHENIDATE) (METHYLPHENIDATE HYDROCHLORIDE) [Concomitant]
  3. BACLOFEN [Concomitant]
  4. ZANAFLEX (TIZANIDINE) (TIZANIDINE HYDROCHLORIDE) [Concomitant]
  5. WELLBUTRIN (BUPROPION) (BUPROPION HYDROCHLORIDE) [Concomitant]
  6. PRILOSEC [Concomitant]
  7. ALPRAZOLAM [Concomitant]

REACTIONS (2)
  - BLOOD OESTROGEN DECREASED [None]
  - FUNGAL INFECTION [None]
